FAERS Safety Report 10505983 (Version 1)
Quarter: 2014Q4

REPORT INFORMATION
  Report Type: Spontaneous
  Country: CA (occurrence: CA)
  Receive Date: 20141008
  Receipt Date: 20141008
  Transmission Date: 20150528
  Serious: Yes (Life-Threatening)
  Sender: FDA-Public Use
  Company Number: CA-BAXTER-2014BAX059336

PATIENT
  Age: 61 Year

DRUGS (2)
  1. CYCLOPHOSPHAMIDE FOR INJECTION, USP [Suspect]
     Active Substance: CYCLOPHOSPHAMIDE
     Indication: METASTATIC RENAL CELL CARCINOMA
  2. CYCLOPHOSPHAMIDE FOR INJECTION, USP [Suspect]
     Active Substance: CYCLOPHOSPHAMIDE
     Indication: CLEAR CELL RENAL CELL CARCINOMA
     Route: 033
     Dates: start: 2013, end: 2014

REACTIONS (3)
  - Metastases to lung [Unknown]
  - Metastases to abdominal cavity [Unknown]
  - Malignant neoplasm progression [Unknown]
